FAERS Safety Report 4919774-6 (Version None)
Quarter: 2006Q1

REPORT INFORMATION
  Report Type: 
  Country: None (occurrence: None)
  Receive Date: 20060216
  Receipt Date: 20060203
  Transmission Date: 20060701
  Serious: Yes (Other)
  Sender: FDA-Public Use
  Company Number: 200610491GDS

PATIENT
  Age: 69 Year
  Sex: Female

DRUGS (11)
  1. CIPRO [Suspect]
     Dosage: 750 MG, BID, ORAL
     Route: 048
  2. TAZOCIN [Suspect]
     Dosage: 4.5 G, TID, INTRAVENOUS
     Route: 042
  3. ASPIRIN [Concomitant]
  4. COUMADIN [Concomitant]
  5. COVERSYL [Concomitant]
  6. FRAGMIN [Concomitant]
  7. INSULIN [Concomitant]
  8. LASIX [Concomitant]
  9. NORVASC [Concomitant]
  10. PANTOPRAZOLE SODIUM [Concomitant]
  11. SYNTHROID [Concomitant]

REACTIONS (4)
  - BLOOD CREATININE INCREASED [None]
  - LICHENOID KERATOSIS [None]
  - RASH PRURITIC [None]
  - STEVENS-JOHNSON SYNDROME [None]
